FAERS Safety Report 9437171 (Version 9)
Quarter: 2017Q3

REPORT INFORMATION
  Report Type: Report from Study
  Country: JP (occurrence: JP)
  Receive Date: 20130802
  Receipt Date: 20170704
  Transmission Date: 20171128
  Serious: Yes (Hospitalization)
  Sender: FDA-Public Use
  Company Number: JP-ROCHE-1254784

PATIENT
  Age: 51 Year
  Sex: Male

DRUGS (64)
  1. RIFABUTIN. [Suspect]
     Active Substance: RIFABUTIN
     Indication: MYCOBACTERIUM AVIUM COMPLEX INFECTION
     Route: 048
     Dates: start: 20110305, end: 20111227
  2. FLUCONAZOLE. [Concomitant]
     Active Substance: FLUCONAZOLE
     Route: 048
     Dates: start: 20110120, end: 20110224
  3. OMEPRAZOLE. [Concomitant]
     Active Substance: OMEPRAZOLE
     Route: 065
     Dates: start: 20110122, end: 20120128
  4. DOLUTEGRAVIR [Concomitant]
     Active Substance: DOLUTEGRAVIR
     Indication: HIV INFECTION
     Route: 048
     Dates: start: 20150116, end: 20150331
  5. ALLERMIST [Concomitant]
     Active Substance: FLUTICASONE FUROATE
     Indication: SINUSITIS
     Route: 045
     Dates: start: 20150313, end: 20150331
  6. SULFAMETHOXAZOLE/TRIMETHOPRIM [Suspect]
     Active Substance: SULFAMETHOXAZOLE\TRIMETHOPRIM
     Indication: INFECTION PROPHYLAXIS
     Dosage: 1 TABLET
     Route: 048
     Dates: start: 20110121, end: 20130227
  7. AZITHROMYCIN ANHYDROUS. [Suspect]
     Active Substance: AZITHROMYCIN ANHYDROUS
     Route: 065
     Dates: start: 20110305, end: 20111227
  8. TRUVADA [Suspect]
     Active Substance: EMTRICITABINE\TENOFOVIR DISOPROXIL FUMARATE
     Indication: HIV INFECTION
     Dosage: 1 TABLET
     Route: 048
     Dates: start: 20110121, end: 20120110
  9. FLUCONAZOLE. [Concomitant]
     Active Substance: FLUCONAZOLE
     Route: 048
     Dates: start: 20111012, end: 20111228
  10. REBAMIPIDE [Concomitant]
     Active Substance: REBAMIPIDE
     Dosage: WHEN HEADACHE OCCURED
     Route: 048
     Dates: start: 20130510, end: 20130721
  11. CALONAL [Concomitant]
     Active Substance: ACETAMINOPHEN
     Indication: HEADACHE
     Route: 048
     Dates: start: 20130510, end: 20130721
  12. VALGANCICLOVIR. [Suspect]
     Active Substance: VALGANCICLOVIR
     Indication: CYTOMEGALOVIRUS INFECTION
     Route: 048
     Dates: start: 20110109, end: 20110218
  13. ENTERONON-R [Suspect]
     Active Substance: PROBIOTICS NOS
     Indication: PRODUCT USED FOR UNKNOWN INDICATION
     Route: 048
     Dates: start: 20110120, end: 20110218
  14. TRIUMEQ [Suspect]
     Active Substance: ABACAVIR SULFATE\DOLUTEGRAVIR SODIUM\LAMIVUDINE
     Indication: HIV INFECTION
     Dosage: 1 DOSAGE FORMS (1 DOSAGE FORMS,1 IN 1 D)
     Route: 048
     Dates: start: 20150509
  15. SAWACILLIN [Concomitant]
     Active Substance: AMOXICILLIN
     Indication: SYPHILIS
     Route: 048
     Dates: start: 20110107, end: 20110203
  16. LOXONIN [Concomitant]
     Active Substance: LOXOPROFEN SODIUM
     Route: 048
     Dates: start: 20110126, end: 20110323
  17. REBAMIPIDE [Concomitant]
     Active Substance: REBAMIPIDE
     Indication: PROPHYLAXIS
     Route: 048
     Dates: start: 20120222, end: 20130123
  18. ZYLORIC [Concomitant]
     Active Substance: ALLOPURINOL
  19. VALGANCICLOVIR. [Suspect]
     Active Substance: VALGANCICLOVIR
     Route: 048
     Dates: start: 20110219, end: 20110726
  20. SAWACILLIN [Concomitant]
     Active Substance: AMOXICILLIN
     Route: 048
     Dates: start: 20110205, end: 20110215
  21. CEPHADOL [Concomitant]
     Active Substance: DIPHENIDOL HYDROCHLORIDE
     Indication: DIZZINESS
     Route: 048
     Dates: start: 20110107, end: 20120128
  22. MYSLEE [Concomitant]
     Active Substance: ZOLPIDEM TARTRATE
     Indication: INSOMNIA
     Route: 048
     Dates: start: 20110107, end: 20111114
  23. MYONAL (JAPAN) [Concomitant]
     Active Substance: EPERISONE HYDROCHLORIDE
     Route: 048
     Dates: start: 20110126, end: 20110223
  24. LOXONIN [Concomitant]
     Active Substance: LOXOPROFEN SODIUM
     Route: 048
     Dates: start: 20110622, end: 20110726
  25. LOXONIN [Concomitant]
     Active Substance: LOXOPROFEN SODIUM
     Route: 065
     Dates: start: 20130227, end: 20130331
  26. FOLIAMIN [Concomitant]
     Active Substance: FOLIC ACID
     Route: 065
     Dates: start: 20111019, end: 20120203
  27. SULFAMETHOXAZOLE/TRIMETHOPRIM [Suspect]
     Active Substance: SULFAMETHOXAZOLE\TRIMETHOPRIM
     Indication: ANTIFUNGAL PROPHYLAXIS
     Dosage: 2 TABLET
     Route: 048
     Dates: start: 20110107, end: 20110120
  28. AZITHROMYCIN ANHYDROUS. [Suspect]
     Active Substance: AZITHROMYCIN ANHYDROUS
     Indication: OPPORTUNISTIC INFECTION PROPHYLAXIS
     Route: 065
     Dates: start: 20110107, end: 20110304
  29. EPZICOM [Suspect]
     Active Substance: ABACAVIR SULFATE\LAMIVUDINE
     Indication: HIV INFECTION
     Dosage: 1 TABLET.
     Route: 048
     Dates: start: 20120111, end: 20150508
  30. ESANBUTOL [Suspect]
     Active Substance: ETHAMBUTOL HYDROCHLORIDE
     Route: 048
     Dates: start: 20111228, end: 20130123
  31. TALION (JAPAN) [Concomitant]
     Active Substance: BEPOTASTINE
     Indication: SEBORRHOEIC DERMATITIS
     Route: 048
     Dates: start: 20110107, end: 20110218
  32. MYSLEE [Concomitant]
     Active Substance: ZOLPIDEM TARTRATE
     Route: 048
     Dates: start: 20120307, end: 20140331
  33. RISUMIC [Concomitant]
     Active Substance: AMEZINIUM METILSULFATE
     Indication: HYPOTENSION
     Route: 048
     Dates: start: 20110108, end: 20120127
  34. ROHYPNOL [Concomitant]
     Active Substance: FLUNITRAZEPAM
     Indication: INSOMNIA
     Route: 048
     Dates: start: 20110608, end: 20111114
  35. REBAMIPIDE [Concomitant]
     Active Substance: REBAMIPIDE
     Route: 048
     Dates: start: 20130227, end: 20130428
  36. MUCODYNE [Concomitant]
     Active Substance: CARBOCYSTEINE
     Indication: SINUSITIS
     Route: 065
     Dates: start: 20150313, end: 20150331
  37. AZITHROMYCIN ANHYDROUS. [Suspect]
     Active Substance: AZITHROMYCIN ANHYDROUS
     Route: 065
     Dates: start: 20111228, end: 20130123
  38. ESANBUTOL [Suspect]
     Active Substance: ETHAMBUTOL HYDROCHLORIDE
     Indication: MYCOBACTERIUM AVIUM COMPLEX INFECTION
     Route: 048
     Dates: start: 20110305, end: 20111227
  39. FOSAMAX [Concomitant]
     Active Substance: ALENDRONATE SODIUM
     Indication: OSTEOPOROSIS
     Route: 048
     Dates: start: 20120815, end: 20130123
  40. LOXONIN [Concomitant]
     Active Substance: LOXOPROFEN SODIUM
     Route: 048
     Dates: start: 20110727, end: 20110928
  41. LOXONIN [Concomitant]
     Active Substance: LOXOPROFEN SODIUM
     Route: 065
     Dates: start: 20120222, end: 20130123
  42. GASMOTIN [Concomitant]
     Active Substance: MOSAPRIDE CITRATE
     Route: 048
     Dates: start: 20110302, end: 20120127
  43. MARZULENE-S [Concomitant]
     Active Substance: SODIUM GUALENATE
     Route: 048
     Dates: start: 20110129, end: 20110220
  44. MARZULENE-S [Concomitant]
     Active Substance: SODIUM GUALENATE
     Route: 048
     Dates: end: 20111110
  45. DENOSINE (JAPAN) [Concomitant]
     Active Substance: GANCICLOVIR
     Indication: CYTOMEGALOVIRUS INFECTION
     Route: 041
     Dates: start: 20121005, end: 20121007
  46. SAMTIREL [Concomitant]
     Active Substance: ATOVAQUONE
     Indication: ANTIFUNGAL PROPHYLAXIS
     Route: 048
     Dates: start: 20130227, end: 20130621
  47. FOSCAVIR [Concomitant]
     Active Substance: FOSCARNET SODIUM
     Indication: CYTOMEGALOVIRUS VIRAEMIA
     Route: 051
     Dates: start: 20111007, end: 20111018
  48. VALGANCICLOVIR. [Suspect]
     Active Substance: VALGANCICLOVIR
     Route: 048
     Dates: start: 20111209, end: 20111228
  49. RITONAVIR. [Suspect]
     Active Substance: RITONAVIR
     Indication: HIV INFECTION
     Route: 048
     Dates: start: 20110121, end: 20130331
  50. DARUNAVIR ETHANOLATE. [Suspect]
     Active Substance: DARUNAVIR ETHANOLATE
     Indication: HIV INFECTION
     Route: 048
     Dates: start: 20110121, end: 20150115
  51. MYCOBUTIN [Suspect]
     Active Substance: RIFABUTIN
     Indication: OPPORTUNISTIC INFECTION PROPHYLAXIS
     Route: 048
     Dates: start: 20110505, end: 20111227
  52. VFEND [Concomitant]
     Active Substance: VORICONAZOLE
     Route: 048
     Dates: start: 20110114, end: 20110119
  53. LOPEMIN (JAPAN) [Concomitant]
     Route: 065
     Dates: start: 20110622, end: 20110928
  54. ALBUMIN TANNATE [Concomitant]
     Active Substance: ALBUMIN BOVINE\TANNIC ACID
     Route: 048
     Dates: start: 20110129, end: 20110220
  55. METHYCOBAL [Concomitant]
     Active Substance: METHYLCOBALAMIN
     Indication: DIABETIC NEUROPATHY
     Route: 065
     Dates: start: 20140408, end: 20150331
  56. LYRICA [Concomitant]
     Active Substance: PREGABALIN
     Indication: DIABETIC NEUROPATHY
     Route: 065
     Dates: start: 20140408, end: 20140516
  57. NEUZYM [Concomitant]
     Active Substance: LYSOZYME HYDROCHLORIDE
     Indication: SINUSITIS
     Route: 065
     Dates: start: 20150313, end: 20150331
  58. VALGANCICLOVIR. [Suspect]
     Active Substance: VALGANCICLOVIR
     Route: 048
     Dates: start: 20110727, end: 20110914
  59. VALGANCICLOVIR. [Suspect]
     Active Substance: VALGANCICLOVIR
     Route: 048
     Dates: start: 20110929, end: 20111004
  60. VALGANCICLOVIR. [Suspect]
     Active Substance: VALGANCICLOVIR
     Route: 048
     Dates: start: 20111019, end: 20111125
  61. VALGANCICLOVIR. [Suspect]
     Active Substance: VALGANCICLOVIR
     Route: 048
     Dates: start: 20120118, end: 20120222
  62. LOPEMIN (JAPAN) [Concomitant]
     Route: 065
     Dates: start: 20110122, end: 20110223
  63. NAUZELIN [Concomitant]
     Active Substance: DOMPERIDONE
     Indication: PROPHYLAXIS
     Route: 048
     Dates: start: 20110206, end: 20111114
  64. KINDAVATE [Concomitant]
     Active Substance: CLOBETASONE BUTYRATE
     Indication: EOSINOPHILIC PUSTULOSIS
     Route: 061
     Dates: start: 20140704, end: 20150331

REACTIONS (19)
  - Liver disorder [Recovering/Resolving]
  - Renal impairment [Not Recovered/Not Resolved]
  - Hyperuricaemia [Recovering/Resolving]
  - Pneumonia [Recovering/Resolving]
  - Osteoporosis [Recovering/Resolving]
  - Hyperlipidaemia [Not Recovered/Not Resolved]
  - Mycobacterium avium complex infection [Recovering/Resolving]
  - Cytopenia [Recovering/Resolving]
  - Lymphadenitis [Recovering/Resolving]
  - Back pain [Recovering/Resolving]
  - Back pain [Not Recovered/Not Resolved]
  - Nausea [Recovering/Resolving]
  - Diarrhoea [Recovering/Resolving]
  - Folate deficiency [Recovered/Resolved]
  - Eosinophilic pustular folliculitis [Not Recovered/Not Resolved]
  - Sinusitis [Not Recovered/Not Resolved]
  - Periarthritis [Recovering/Resolving]
  - Diabetic neuropathy [Not Recovered/Not Resolved]
  - Diabetes mellitus [Not Recovered/Not Resolved]

NARRATIVE: CASE EVENT DATE: 20110107
